FAERS Safety Report 12405453 (Version 1)
Quarter: 2016Q2

REPORT INFORMATION
  Report Type: Spontaneous
  Country: US (occurrence: None)
  Receive Date: 20160525
  Receipt Date: 20160525
  Transmission Date: 20160815
  Serious: No
  Sender: FDA-Public Use
  Company Number: None

PATIENT
  Sex: Male

DRUGS (1)
  1. PROLIA [Suspect]
     Active Substance: DENOSUMAB

REACTIONS (21)
  - Confusional state [None]
  - Blood iron decreased [None]
  - Memory impairment [None]
  - Myalgia [None]
  - Urinary tract infection [None]
  - Pain in extremity [None]
  - Nightmare [None]
  - Somnolence [None]
  - Blood pressure systolic increased [None]
  - Asthenia [None]
  - Carpal tunnel syndrome [None]
  - Constipation [None]
  - Electroencephalogram abnormal [None]
  - Arthralgia [None]
  - Musculoskeletal pain [None]
  - Fatigue [None]
  - Libido decreased [None]
  - Blood testosterone decreased [None]
  - Cognitive disorder [None]
  - Headache [None]
  - Partial seizures [None]

NARRATIVE: CASE EVENT DATE: 20150309
